FAERS Safety Report 10003501 (Version 1)
Quarter: 2014Q1

REPORT INFORMATION
  Report Type: Spontaneous
  Country: US (occurrence: US)
  Receive Date: 20140312
  Receipt Date: 20140312
  Transmission Date: 20141002
  Serious: Yes (Other)
  Sender: FDA-Public Use
  Company Number: US-PFIZER INC-2014068650

PATIENT
  Age: 55 Year
  Sex: Female
  Weight: 70.75 kg

DRUGS (5)
  1. LYRICA [Suspect]
     Indication: ULNAR NERVE PALSY
     Dosage: 50 MG, 2X/DAY
     Dates: start: 20131029, end: 2013
  2. LYRICA [Suspect]
     Dosage: 100 MG, 2X/DAY
     Dates: start: 201311, end: 201311
  3. LYRICA [Suspect]
     Dosage: 150 MG, 2X/DAY
     Dates: start: 201311, end: 2013
  4. LYRICA [Suspect]
     Dosage: UNKNOWN DOSE TWO TIMES A DAY
     Dates: end: 20131228
  5. APIDRA [Concomitant]
     Indication: TYPE 1 DIABETES MELLITUS
     Dosage: 20-30 UNITS DAILY

REACTIONS (10)
  - Off label use [Unknown]
  - Eye haemorrhage [Recovering/Resolving]
  - Blood creatinine increased [Unknown]
  - Visual acuity reduced [Unknown]
  - Ophthalmological examination abnormal [Unknown]
  - Alanine aminotransferase increased [Unknown]
  - Aspartate aminotransferase increased [Unknown]
  - Feeling abnormal [Unknown]
  - Somnolence [Unknown]
  - Drug intolerance [Unknown]
